FAERS Safety Report 9892584 (Version 2)
Quarter: 2014Q1

REPORT INFORMATION
  Report Type: Spontaneous
  Country: TW (occurrence: TW)
  Receive Date: 20140212
  Receipt Date: 20140221
  Transmission Date: 20141002
  Serious: Yes (Death, Life-Threatening, Hospitalization)
  Sender: FDA-Public Use
  Company Number: TW-B.I. PHARMACEUTICALS,INC./RIDGEFIELD-2014-BI-06246RF

PATIENT
  Age: 25 Year
  Sex: Male

DRUGS (3)
  1. VIRAMUNE [Suspect]
     Indication: HIV INFECTION
     Route: 048
     Dates: start: 201312
  2. ANTIDEPRESSANT [Concomitant]
  3. TAMIFLU [Concomitant]
     Dates: start: 201401

REACTIONS (4)
  - Hepatic failure [Fatal]
  - Stevens-Johnson syndrome [Fatal]
  - Pyrexia [Unknown]
  - Rash [Unknown]
